FAERS Safety Report 17835886 (Version 2)
Quarter: 2020Q3

REPORT INFORMATION
  Report Type: Spontaneous
  Country: GB (occurrence: GB)
  Receive Date: 20200528
  Receipt Date: 20200921
  Transmission Date: 20201103
  Serious: Yes (Other)
  Sender: FDA-Public Use
  Company Number: GB-NOVA LABORATORIES LIMITED-2084277

PATIENT
  Age: 36 Year
  Sex: Female

DRUGS (3)
  1. OCTASA [Suspect]
     Active Substance: MESALAMINE
     Route: 048
     Dates: start: 201306
  2. AZATHIOPRINE. [Concomitant]
     Active Substance: AZATHIOPRINE
     Dates: start: 20190520, end: 20190706
  3. PURIXAN [Suspect]
     Active Substance: MERCAPTOPURINE
     Dates: start: 20190828

REACTIONS (2)
  - Abortion spontaneous [Unknown]
  - Exposure during pregnancy [None]
